FAERS Safety Report 5313443-9 (Version None)
Quarter: 2007Q2

REPORT INFORMATION
  Report Type: 
  Country: None (occurrence: None)
  Receive Date: 20070501
  Receipt Date: 20070424
  Transmission Date: 20071010
  Serious: Yes (Hospitalization)
  Sender: FDA-Public Use
  Company Number: NL-BAYER-200612928GDS

PATIENT
  Age: 80 Year
  Sex: Male
  Weight: 61 kg

DRUGS (16)
  1. SORAFENIB [Suspect]
     Indication: RENAL CELL CARCINOMA STAGE UNSPECIFIED
     Dosage: TOTAL DAILY DOSE: 800 MG
     Route: 048
     Dates: start: 20060407, end: 20060509
  2. SORAFENIB [Suspect]
     Dosage: TOTAL DAILY DOSE: 800 MG
     Route: 048
     Dates: start: 20060509, end: 20060530
  3. SORAFENIB [Suspect]
     Dosage: TOTAL DAILY DOSE: 800 MG
     Route: 048
     Dates: start: 20060530, end: 20060614
  4. SORAFENIB [Suspect]
     Route: 048
     Dates: start: 20060614, end: 20060704
  5. SORAFENIB [Suspect]
     Route: 048
     Dates: start: 20060704, end: 20060707
  6. SORAFENIB [Suspect]
     Route: 048
     Dates: start: 20060720, end: 20060913
  7. SORAFENIB [Suspect]
     Route: 048
     Dates: start: 20060913, end: 20060927
  8. IRBESARTAN [Concomitant]
     Indication: HYPERTENSION
     Route: 065
     Dates: start: 20060101, end: 20060420
  9. MIRTAZAPINE [Concomitant]
     Indication: DEPRESSION
     Route: 065
     Dates: start: 20060101
  10. ADALAT [Concomitant]
     Indication: HYPERTENSION
     Route: 065
     Dates: start: 20060425
  11. DICLOFENAC [Concomitant]
     Indication: PAIN
     Route: 065
     Dates: start: 20060530, end: 20060614
  12. COAPROVEL [Concomitant]
     Indication: HYPERTENSION
     Route: 065
     Dates: start: 20060420, end: 20060707
  13. CALCI-CHEW [Concomitant]
     Indication: METASTASES TO BONE
     Route: 065
     Dates: start: 20060711
  14. TAMSULOSIN HCL [Concomitant]
     Indication: URINARY TRACT INFECTION
     Route: 065
     Dates: start: 20060701, end: 20060701
  15. NITROFURANTOIN [Concomitant]
     Indication: URINARY TRACT INFECTION
     Route: 065
     Dates: start: 20060701, end: 20060701
  16. HYPROMELLOSE [Concomitant]
     Indication: EYE DISORDER
     Route: 047
     Dates: start: 20060712

REACTIONS (1)
  - CEREBRAL ISCHAEMIA [None]
